FAERS Safety Report 7735320-6 (Version None)
Quarter: 2011Q3

REPORT INFORMATION
  Report Type: 
  Country: None (occurrence: None)
  Receive Date: 20110907
  Receipt Date: 20110830
  Transmission Date: 20111222
  Serious: Yes (Other)
  Sender: FDA-Public Use
  Company Number: US-SANOFI-AVENTIS-2011SA055888

PATIENT
  Age: 62 Year
  Sex: Male

DRUGS (2)
  1. LANTUS [Suspect]
     Dosage: DOSE:50 UNIT(S)
     Route: 058
     Dates: start: 20070101
  2. SOLOSTAR [Suspect]
     Dates: start: 20070101

REACTIONS (2)
  - SKIN CANCER [None]
  - RENAL DISORDER [None]
